FAERS Safety Report 5755080-8 (Version None)
Quarter: 2008Q2

REPORT INFORMATION
  Report Type: 
  Country: None (occurrence: None)
  Receive Date: 20080602
  Receipt Date: 20080521
  Transmission Date: 20081010
  Serious: Yes (Hospitalization)
  Sender: FDA-Public Use
  Company Number: JP-WYE-H02318708

PATIENT
  Sex: Male

DRUGS (13)
  1. AMIODARONE HCL [Suspect]
     Indication: VENTRICULAR TACHYCARDIA
     Route: 048
     Dates: start: 20010901, end: 20070926
  2. SOTALOL HCL [Concomitant]
     Indication: VENTRICULAR TACHYCARDIA
     Route: 048
     Dates: start: 20050101
  3. LIPITOR [Concomitant]
     Indication: HYPERLIPIDAEMIA
     Route: 048
     Dates: start: 20011122
  4. WARFARIN SODIUM [Concomitant]
     Indication: CARDIAC FIBRILLATION
     Route: 048
     Dates: start: 20000623
  5. MAGNESIUM OXIDE [Concomitant]
     Indication: CONSTIPATION
     Route: 048
     Dates: start: 20010921
  6. FAMOTIDINE [Concomitant]
     Indication: GASTRITIS
     Route: 048
     Dates: start: 20010928, end: 20051115
  7. ARTIST [Concomitant]
     Indication: CARDIAC FAILURE
     Route: 048
     Dates: start: 20050101
  8. ROHYPNOL [Concomitant]
     Indication: INSOMNIA
     Dates: start: 20050101
  9. PERINDOPRIL ERBUMINE [Concomitant]
     Indication: CARDIAC FAILURE
     Dosage: 1 MG, FREQUENCY UNSPECIFIED
  10. OMEPRAZOLE [Concomitant]
     Indication: GASTRITIS
     Route: 048
     Dates: start: 20070411
  11. DIGOXIN [Concomitant]
     Indication: CARDIAC FAILURE
     Route: 048
     Dates: start: 20071226
  12. LASIX [Concomitant]
     Indication: CARDIAC FAILURE
     Dosage: 40 MG EVERY
     Route: 048
     Dates: start: 20010928
  13. GLYSENNID [Concomitant]
     Indication: CONSTIPATION
     Route: 048
     Dates: start: 20050101

REACTIONS (6)
  - ATRIAL FIBRILLATION [None]
  - CARDIAC FAILURE CHRONIC [None]
  - DRUG EFFECT DECREASED [None]
  - HEPATIC STEATOSIS [None]
  - PALPITATIONS [None]
  - VENTRICULAR TACHYCARDIA [None]
